FAERS Safety Report 4999356-0 (Version None)
Quarter: 2006Q2

REPORT INFORMATION
  Report Type: 
  Country: None (occurrence: None)
  Receive Date: 20060509
  Receipt Date: 20060509
  Transmission Date: 20061013
  Serious: Yes (Hospitalization)
  Sender: FDA-Public Use
  Company Number: None

PATIENT
  Age: 36 Year
  Sex: Female

DRUGS (4)
  1. ADVAIR DISKUS 100/50 [Suspect]
     Indication: ASTHMA
     Dosage: 250/50   PO   Q12
     Route: 048
  2. ALPRAZOLAM [Concomitant]
  3. ALBUTEROL SULFATE AUTOHALER [Concomitant]
  4. LORATADINE [Concomitant]

REACTIONS (7)
  - COUGH [None]
  - DYSPNOEA [None]
  - OXYGEN SATURATION DECREASED [None]
  - PEAK EXPIRATORY FLOW RATE DECREASED [None]
  - RESPIRATORY DISORDER [None]
  - TACHYPNOEA [None]
  - TREATMENT NONCOMPLIANCE [None]
